FAERS Safety Report 23147827 (Version 1)
Quarter: 2023Q4

REPORT INFORMATION
  Report Type: Spontaneous
  Country: VN (occurrence: VN)
  Receive Date: 20231106
  Receipt Date: 20231106
  Transmission Date: 20240110
  Serious: Yes (Hospitalization, Other)
  Sender: FDA-Public Use
  Company Number: VN-ALKEM LABORATORIES LIMITED-VN-ALKEM-2023-13240

PATIENT
  Age: 8 Decade
  Sex: Female

DRUGS (1)
  1. COLCHICINE [Suspect]
     Active Substance: COLCHICINE
     Indication: Gouty arthritis
     Dosage: 1 MG/DAY
     Route: 065

REACTIONS (4)
  - Toxicity to various agents [Unknown]
  - Renal impairment [Recovering/Resolving]
  - Diarrhoea [Unknown]
  - Myopathy [Recovered/Resolved]
